FAERS Safety Report 4676929-6 (Version None)
Quarter: 2005Q2

REPORT INFORMATION
  Report Type: 
  Country: None (occurrence: None)
  Receive Date: 20050530
  Receipt Date: 20050331
  Transmission Date: 20051028
  Serious: Yes (Hospitalization, Other)
  Sender: FDA-Public Use
  Company Number: PHNU2005DE01495

PATIENT
  Sex: Female

DRUGS (2)
  1. ZOMETA [Suspect]
     Indication: METASTASES TO BONE
     Dosage: 4 MG, QMO
     Route: 042
     Dates: start: 20011102
  2. ANASTROZOLE [Concomitant]
     Route: 048
     Dates: start: 20020201

REACTIONS (2)
  - DENTAL TREATMENT [None]
  - OSTEOMYELITIS [None]
